FAERS Safety Report 25810162 (Version 1)
Quarter: 2025Q3

REPORT INFORMATION
  Report Type: Report from Study
  Country: US (occurrence: US)
  Receive Date: 20250917
  Receipt Date: 20250917
  Transmission Date: 20251021
  Serious: Yes (Hospitalization)
  Sender: ACADIA PHARMACEUTICALS
  Company Number: US-ACADIA PHARMACEUTICALS INC.-ACA-2025-PIM-010253

PATIENT
  Age: 84 Year
  Sex: Female

DRUGS (8)
  1. NUPLAZID [Suspect]
     Active Substance: PIMAVANSERIN TARTRATE
     Indication: Parkinson^s disease psychosis
     Dosage: 34 MILLIGRAM, QD
     Route: 048
     Dates: start: 20240130
  2. VITAMIN C [Concomitant]
     Active Substance: ASCORBIC ACID
  3. PRAMIPEXOLE [Concomitant]
     Active Substance: PRAMIPEXOLE
  4. CARBIDOPA\LEVODOPA [Concomitant]
     Active Substance: CARBIDOPA\LEVODOPA
  5. TIMOLOL [Concomitant]
     Active Substance: TIMOLOL
  6. ESTRACE [Concomitant]
     Active Substance: ESTRADIOL
  7. VITAMIN E [Concomitant]
     Active Substance: .ALPHA.-TOCOPHEROL
  8. VITAMINS NOS [Concomitant]
     Active Substance: VITAMINS

REACTIONS (1)
  - Limb discomfort [Recovering/Resolving]

NARRATIVE: CASE EVENT DATE: 20250907
